FAERS Safety Report 5260961-8 (Version None)
Quarter: 2007Q1

REPORT INFORMATION
  Report Type: 
  Country: None (occurrence: None)
  Receive Date: 20070309
  Receipt Date: 20070228
  Transmission Date: 20070707
  Serious: Yes (Hospitalization)
  Sender: FDA-Public Use
  Company Number: JP-BRISTOL-MYERS SQUIBB COMPANY-13684436

PATIENT
  Age: 50 Year
  Sex: Female

DRUGS (7)
  1. ENDOXAN [Suspect]
     Indication: ALLERGIC GRANULOMATOUS ANGIITIS
     Route: 048
     Dates: start: 20061113, end: 20070104
  2. PREDONINE [Concomitant]
     Indication: ALLERGIC GRANULOMATOUS ANGIITIS
     Route: 048
  3. ALEVIATIN [Concomitant]
     Dates: end: 20070214
  4. DEPAKENE [Concomitant]
  5. TEGRETOL [Concomitant]
  6. SPIROPENT [Concomitant]
  7. UNIPHYL [Concomitant]

REACTIONS (1)
  - STATUS EPILEPTICUS [None]
